FAERS Safety Report 4940923-8 (Version None)
Quarter: 2006Q1

REPORT INFORMATION
  Report Type: 
  Country: None (occurrence: None)
  Receive Date: 20060307
  Receipt Date: 20060227
  Transmission Date: 20060701
  Serious: No
  Sender: FDA-Public Use
  Company Number: 06H-083-0305911-00

PATIENT
  Age: 30 Year
  Sex: Male
  Weight: 50 kg

DRUGS (2)
  1. CALCIUM GLUCONATE INJ [Suspect]
     Indication: MINERAL SUPPLEMENTATION
     Dosage: INTRAVENOUS
     Route: 042
  2. DEXTROSE 5% [Concomitant]

REACTIONS (11)
  - ARRHYTHMIA [None]
  - BRONCHOSPASM [None]
  - CONDITION AGGRAVATED [None]
  - CONVULSION [None]
  - ELECTROCARDIOGRAM QT PROLONGED [None]
  - HYPOCALCAEMIA [None]
  - LARYNGOSPASM [None]
  - MEDICATION ERROR [None]
  - SIMPLE PARTIAL SEIZURES [None]
  - TETANY [None]
  - UNDERDOSE [None]
